FAERS Safety Report 18849422 (Version 3)
Quarter: 2021Q1

REPORT INFORMATION
  Report Type: Spontaneous
  Country: ES (occurrence: ES)
  Receive Date: 20210204
  Receipt Date: 20210316
  Transmission Date: 20210419
  Serious: Yes (Hospitalization)
  Sender: FDA-Public Use
  Company Number: ES-GILEAD-2021-0515639

PATIENT
  Age: 13 Year
  Sex: Male
  Weight: 65 kg

DRUGS (5)
  1. VEKLURY [Suspect]
     Active Substance: REMDESIVIR
     Dosage: 200 MG, ONCE
     Route: 042
     Dates: start: 202011, end: 202011
  2. SALBUTAMOL [Concomitant]
     Active Substance: ALBUTEROL
  3. DEXAMETHASONE. [Concomitant]
     Active Substance: DEXAMETHASONE
  4. VEKLURY [Suspect]
     Active Substance: REMDESIVIR
     Indication: COVID-19
     Dosage: 100 MG, QD
     Route: 042
     Dates: start: 2020, end: 2020
  5. CEFTRIAXONE. [Concomitant]
     Active Substance: CEFTRIAXONE

REACTIONS (1)
  - Sinus bradycardia [Recovered/Resolved]

NARRATIVE: CASE EVENT DATE: 2020
